FAERS Safety Report 7552750-6 (Version None)
Quarter: 2011Q2

REPORT INFORMATION
  Report Type: 
  Country: None (occurrence: None)
  Receive Date: 20110616
  Receipt Date: 20110601
  Transmission Date: 20111010
  Serious: Yes (Other)
  Sender: FDA-Public Use
  Company Number: PL-UCBSA-034734

PATIENT
  Age: 34 Year
  Sex: Female

DRUGS (3)
  1. DEPAKENE [Concomitant]
  2. KEPPRA [Suspect]
  3. DEPAKENE [Concomitant]
     Dosage: 800MG - 1000MG

REACTIONS (3)
  - CONFUSIONAL STATE [None]
  - EPILEPSY [None]
  - POSTICTAL HEADACHE [None]
